FAERS Safety Report 7050295-3 (Version None)
Quarter: 2010Q4

REPORT INFORMATION
  Report Type: 
  Country: None (occurrence: None)
  Receive Date: 20101018
  Receipt Date: 20100827
  Transmission Date: 20110411
  Serious: No
  Sender: FDA-Public Use
  Company Number: US-BAYER-201020807BCC

PATIENT
  Age: 81 Year
  Sex: Female
  Weight: 72 kg

DRUGS (2)
  1. ALEVE (CAPLET) [Suspect]
     Indication: NECK PAIN
     Dosage: TOTAL DAILY DOSE: 220 MG  UNIT DOSE: 220 MG
     Route: 048
     Dates: start: 20100201, end: 20100201
  2. ALEVE (CAPLET) [Suspect]
     Dosage: TOTAL DAILY DOSE: 220 MG  UNIT DOSE: 220 MG
     Route: 048
     Dates: start: 20100827

REACTIONS (2)
  - DRUG INEFFECTIVE [None]
  - HEADACHE [None]
